FAERS Safety Report 5650866-2 (Version None)
Quarter: 2008Q1

REPORT INFORMATION
  Report Type: 
  Country: None (occurrence: None)
  Receive Date: 20080131
  Receipt Date: 20071221
  Transmission Date: 20080703
  Serious: No
  Sender: FDA-Public Use
  Company Number: US200712004743

PATIENT
  Age: 87 Year
  Sex: Female

DRUGS (3)
  1. BYETTA [Suspect]
     Indication: TYPE 2 DIABETES MELLITUS
     Dosage: 5 UG, 2/D, SUBCUTANEOUS ; 10 UG, 2/D, SUBCUTANEOUS
     Route: 058
     Dates: start: 20070501, end: 20070801
  2. BYETTA [Suspect]
     Indication: TYPE 2 DIABETES MELLITUS
     Dosage: 5 UG, 2/D, SUBCUTANEOUS ; 10 UG, 2/D, SUBCUTANEOUS
     Route: 058
     Dates: start: 20070801
  3. GLYBURIDE [Concomitant]

REACTIONS (8)
  - BLOOD GLUCOSE INCREASED [None]
  - CYSTITIS [None]
  - INCORRECT DOSE ADMINISTERED [None]
  - INJECTION SITE EXTRAVASATION [None]
  - MALAISE [None]
  - URINARY TRACT INFECTION [None]
  - URINARY TRACT INFLAMMATION [None]
  - WHITE BLOOD CELLS URINE [None]
